FAERS Safety Report 7743976-7 (Version None)
Quarter: 2011Q3

REPORT INFORMATION
  Report Type: 
  Country: None (occurrence: None)
  Receive Date: 20110912
  Receipt Date: 20110829
  Transmission Date: 20111222
  Serious: No
  Sender: FDA-Public Use
  Company Number: US-B.I. PHARMACEUTICALS,INC./RIDGEFIELD-2011-BP-19237BP

PATIENT
  Age: 79 Year
  Sex: Male
  Weight: 110.5 kg

DRUGS (4)
  1. TOPROL-XL [Concomitant]
     Dosage: 25 MG
     Dates: start: 20110330
  2. CLONAZEPAM [Concomitant]
     Dates: start: 20081010
  3. PRADAXA [Suspect]
     Indication: ATRIAL FIBRILLATION
     Dosage: 300 MG
     Dates: start: 20110425, end: 20110505
  4. PRAVASTATIN [Concomitant]
     Dates: start: 19980213

REACTIONS (2)
  - THROAT TIGHTNESS [None]
  - ABDOMINAL PAIN [None]
